FAERS Safety Report 6045180-X (Version None)
Quarter: 2009Q1

REPORT INFORMATION
  Report Type: 
  Country: None (occurrence: None)
  Receive Date: 20090116
  Receipt Date: 20090116
  Transmission Date: 20090719
  Serious: Yes (Life-Threatening, Disabling)
  Sender: FDA-Public Use
  Company Number: None

PATIENT
  Sex: Female
  Weight: 81.6475 kg

DRUGS (1)
  1. NITROFURANTOIN [Suspect]
     Indication: URINARY TRACT INFECTION
     Dosage: 1 CAPSULE DAILY ORAL  SPRING 2006-SPRING2007
     Route: 048
     Dates: start: 20060101, end: 20070101

REACTIONS (1)
  - INTERSTITIAL LUNG DISEASE [None]
